FAERS Safety Report 10385321 (Version 9)
Quarter: 2024Q4

REPORT INFORMATION
  Report Type: Spontaneous
  Country: GR (occurrence: GR)
  Receive Date: 20140814
  Receipt Date: 20241114
  Transmission Date: 20250115
  Serious: Yes (Death, Other)
  Sender: TEVA
  Company Number: None

PATIENT
  Age: 34 Year
  Sex: Female
  Weight: 53 kg

DRUGS (18)
  1. FILGRASTIM [Suspect]
     Active Substance: FILGRASTIM
     Indication: White blood cell count decreased
     Dosage: DOSAGE TEXT: ADMINISTERED ON 10/7 AND 12/7/2014, ACCORDING TO THE MOTHER;?TEVAGRASTIM
     Route: 065
     Dates: start: 20140710, end: 20140712
  2. DOXORUBICIN HYDROCHLORIDE [Suspect]
     Active Substance: DOXORUBICIN HYDROCHLORIDE
     Indication: Hodgkin^s disease
     Dosage: DOSAGE TEXT: 55 MG DAY 1 INTRAVENOUSLY
     Route: 042
     Dates: start: 20140702
  3. ALLOPURINOL [Concomitant]
     Active Substance: ALLOPURINOL
     Indication: Product used for unknown indication
     Dosage: 100 MILLIGRAM, QD
     Dates: start: 20140702
  4. ALLOPURINOL [Concomitant]
     Active Substance: ALLOPURINOL
     Indication: Product used for unknown indication
     Dosage: 3 MILLIGRAM, QD
     Dates: start: 20140702
  5. EMEND [Suspect]
     Active Substance: APREPITANT
     Indication: Prophylaxis of nausea and vomiting
     Dosage: DOSAGE TEXT: 125-80-80 THE 3 FIRST DAY OF EACH CYCLE
     Route: 048
     Dates: start: 20140702
  6. PREDNISOLONE [Suspect]
     Active Substance: PREDNISOLONE
     Indication: Hodgkin^s disease
     Dosage: TIME INTERVAL: 0.33333333 DAYS: DOSAGE TEXT: 20 MG 3 TIMES A DAY FOR DAYS 1-4
     Route: 048
     Dates: start: 20140702
  7. PREDNISOLONE [Suspect]
     Active Substance: PREDNISOLONE
     Indication: Hodgkin^s disease
     Dosage: 60 MILLIGRAM, QD
     Route: 048
     Dates: start: 20140702
  8. CYCLOPHOSPHAMIDE [Suspect]
     Active Substance: CYCLOPHOSPHAMIDE
     Indication: Hodgkin^s disease
     Dosage: DOSAGE TEXT: 1950 MG DAY 1 INTRAVENOUSLY, 1000MG/VIAL PD.INJ.SOL
     Route: 042
     Dates: start: 20140702
  9. PREDNISOLONE [Suspect]
     Active Substance: PREDNISOLONE
     Indication: Product used for unknown indication
     Dosage: 60 MILLIGRAM, QD
     Route: 048
  10. ETOPOSIDE [Suspect]
     Active Substance: ETOPOSIDE
     Indication: Hodgkin^s disease
     Dosage: DOSAGE TEXT: 300 MG DAYS 1-3, 100 MG/5ML
     Route: 042
     Dates: start: 20140702
  11. ONDANSETRON [Suspect]
     Active Substance: ONDANSETRON
     Indication: Prophylaxis of nausea and vomiting
     Dosage: DOSAGE TEXT: 8 MG WHEN HAVING NAUSEA AND UP TO 2 TABLETS A DAY
     Route: 048
  12. PROCARBAZINE HYDROCHLORIDE [Suspect]
     Active Substance: PROCARBAZINE HYDROCHLORIDE
     Indication: Hodgkin^s disease
     Dosage: TIME INTERVAL: 0.33333333 DAYS: DOSAGE TEXT: 50MG 3 TIMES A DAY, FOR DAYS 1 TO 7
     Route: 048
     Dates: start: 20140702
  13. PROCARBAZINE HYDROCHLORIDE [Suspect]
     Active Substance: PROCARBAZINE HYDROCHLORIDE
     Indication: Hodgkin^s disease
     Dosage: 150 MILLIGRAM, QD
     Route: 048
     Dates: start: 20140702
  14. MESNA [Suspect]
     Active Substance: MESNA
     Indication: Product used for unknown indication
     Dosage: DOSAGE TEXT: 800 MG BEFORE ENDOXAN AND 800 MG 4 HOURS LATER
     Route: 065
     Dates: start: 20140702
  15. ZANTAC [Concomitant]
     Active Substance: RANITIDINE HYDROCHLORIDE
     Indication: Product used for unknown indication
     Dosage: DOSAGE TEXT: FOR THE DAYS CORTISON IS ADMINISTRATED
     Route: 065
     Dates: start: 20140702
  16. ONDANSETRON HYDROCHLORIDE [Suspect]
     Active Substance: ONDANSETRON HYDROCHLORIDE
     Indication: Prophylaxis of nausea and vomiting
     Dosage: UNK
     Route: 065
  17. ONDANSETRON [Suspect]
     Active Substance: ONDANSETRON
     Indication: Prophylaxis of nausea and vomiting
     Route: 065
  18. ARANESP [Suspect]
     Active Substance: DARBEPOETIN ALFA
     Indication: Product used for unknown indication
     Dosage: UNK, 1/WEEK
     Route: 065

REACTIONS (8)
  - Myocardial ischaemia [Fatal]
  - Tachycardia [Fatal]
  - Pyrexia [Fatal]
  - Aspiration [Fatal]
  - Neutropenia [Fatal]
  - Cardiac arrest [Fatal]
  - Vomiting [Fatal]
  - Diarrhoea [Recovered/Resolved]

NARRATIVE: CASE EVENT DATE: 20140709
